FAERS Safety Report 6207216-2 (Version None)
Quarter: 2009Q2

REPORT INFORMATION
  Report Type: 
  Country: None (occurrence: None)
  Receive Date: 20090528
  Receipt Date: 20090520
  Transmission Date: 20091009
  Serious: Yes (Other)
  Sender: FDA-Public Use
  Company Number: PHHY2009FR19479

PATIENT
  Age: 40 Year
  Sex: Male

DRUGS (2)
  1. ACLASTA [Suspect]
     Indication: MYALGIA
     Dosage: UNK
     Dates: start: 20090516
  2. CELEBREX [Concomitant]

REACTIONS (10)
  - CHILLS [None]
  - CHROMATURIA [None]
  - DELIRIUM [None]
  - DIZZINESS [None]
  - EYE ROLLING [None]
  - INFLUENZA [None]
  - MALAISE [None]
  - PYREXIA [None]
  - RESPIRATORY RATE INCREASED [None]
  - TREMOR [None]
